FAERS Safety Report 7102051-5 (Version None)
Quarter: 2010Q4

REPORT INFORMATION
  Report Type: 
  Country: None (occurrence: None)
  Receive Date: 20101115
  Receipt Date: 20101102
  Transmission Date: 20110411
  Serious: Yes (Life-Threatening, Hospitalization)
  Sender: FDA-Public Use
  Company Number: JP-JNJFOC-20101000850

PATIENT
  Sex: Female

DRUGS (8)
  1. LEVOFLOXACIN [Suspect]
     Indication: ENTEROCOLITIS
     Route: 048
  2. LEVOFLOXACIN [Suspect]
     Indication: COLITIS
     Route: 048
  3. ANTI-DIARRHEAL MEDICATION [Suspect]
     Indication: DIARRHOEA
     Route: 065
  4. BIOFERMIN R [Concomitant]
     Indication: ENTEROCOLITIS
     Route: 048
  5. STEROIDS NOS [Concomitant]
  6. ZITHROMAX [Concomitant]
     Indication: ENTEROCOLITIS
     Route: 048
  7. MILLACT [Concomitant]
     Indication: ENTEROCOLITIS
     Route: 048
  8. LOPEMIN [Concomitant]
     Indication: ENTEROCOLITIS
     Route: 048

REACTIONS (5)
  - COLITIS ULCERATIVE [None]
  - HAEMATOCHEZIA [None]
  - HENOCH-SCHONLEIN PURPURA [None]
  - LEUKOCYTOCLASTIC VASCULITIS [None]
  - PURPURA FULMINANS [None]
